FAERS Safety Report 10044435 (Version 1)
Quarter: 2014Q1

REPORT INFORMATION
  Report Type: Spontaneous
  Country: ES (occurrence: ES)
  Receive Date: 20140328
  Receipt Date: 20140328
  Transmission Date: 20141002
  Serious: Yes (Other)
  Sender: FDA-Public Use
  Company Number: ES-SA-2014SA033970

PATIENT
  Age: 57 Year
  Sex: Male
  Weight: 67 kg

DRUGS (2)
  1. CLEXANE [Suspect]
     Indication: PRODUCT USED FOR UNKNOWN INDICATION
     Route: 058
     Dates: start: 20140225, end: 20140305
  2. CLEXANE [Suspect]
     Indication: PRODUCT USED FOR UNKNOWN INDICATION
     Route: 058
     Dates: start: 20140220

REACTIONS (1)
  - Neutropenia [Recovered/Resolved]
